FAERS Safety Report 14571244 (Version 1)
Quarter: 2018Q1

REPORT INFORMATION
  Report Type: Report from Study
  Country: BR (occurrence: BR)
  Receive Date: 20180226
  Receipt Date: 20180226
  Transmission Date: 20180509
  Serious: Yes (Other)
  Sender: FDA-Public Use
  Company Number: PHHY2017BR112907

PATIENT
  Age: 87 Year
  Sex: Male
  Weight: 60 kg

DRUGS (2)
  1. EXELON PATCH [Suspect]
     Active Substance: RIVASTIGMINE
     Indication: DEMENTIA ALZHEIMER^S TYPE
     Dosage: 4.6 MG, QD PATCH 5 (CM2)
     Route: 062
  2. EXELON PATCH [Suspect]
     Active Substance: RIVASTIGMINE
     Dosage: 9.5 MG, QD PATCH 10 (CM2)
     Route: 062

REACTIONS (9)
  - Wound [Unknown]
  - Asthenia [Recovering/Resolving]
  - Haematuria [Not Recovered/Not Resolved]
  - Pruritus [Unknown]
  - Urinary incontinence [Recovering/Resolving]
  - Rash [Not Recovered/Not Resolved]
  - Muscular weakness [Recovering/Resolving]
  - Lack of application site rotation [Unknown]
  - Balance disorder [Recovering/Resolving]

NARRATIVE: CASE EVENT DATE: 201711
